FAERS Safety Report 17114851 (Version 1)
Quarter: 2019Q4

REPORT INFORMATION
  Report Type: Spontaneous
  Country: US (occurrence: US)
  Receive Date: 20191205
  Receipt Date: 20191205
  Transmission Date: 20200122
  Serious: No
  Sender: FDA-Public Use
  Company Number: US-TORRENT-00007744

PATIENT
  Age: 69 Year
  Sex: Female
  Weight: 67 kg

DRUGS (5)
  1. RABEPRAZOLE [Suspect]
     Active Substance: RABEPRAZOLE
     Indication: GASTROOESOPHAGEAL REFLUX DISEASE
  2. B50 COMPLEX [Concomitant]
     Indication: PRODUCT USED FOR UNKNOWN INDICATION
     Dosage: 1 TABLET PER DAY BY MOUTH
     Route: 048
  3. ULTRASTRENGTH RX OMEGA-3 [Concomitant]
     Indication: BLOOD CHOLESTEROL
     Dosage: 1 SOFTGEL PER DAY AT NIGHT BY MOUTH
     Route: 048
  4. ESTER-C [Concomitant]
     Indication: PRODUCT USED FOR UNKNOWN INDICATION
     Dosage: 500 MG TABLET ONCE A DAY BY MOUTH
     Route: 048
  5. CALCIUM CITRATE PLUS D3 [Concomitant]
     Indication: PRODUCT USED FOR UNKNOWN INDICATION
     Dosage: 2 TABLETS TWICE A DAY BY MOUTH
     Route: 048

REACTIONS (3)
  - Drug ineffective [Unknown]
  - Dry eye [Unknown]
  - Intentional product use issue [Unknown]
